FAERS Safety Report 5996764-6 (Version None)
Quarter: 2008Q4

REPORT INFORMATION
  Report Type: 
  Country: None (occurrence: None)
  Receive Date: 20081212
  Receipt Date: 20081024
  Transmission Date: 20090506
  Serious: No
  Sender: FDA-Public Use
  Company Number: US-ABBOTT-08P-163-0483674-00

PATIENT
  Sex: Female
  Weight: 59.02 kg

DRUGS (9)
  1. HUMIRA [Suspect]
     Indication: RHEUMATOID ARTHRITIS
     Route: 058
     Dates: start: 20070101
  2. AMOLOPINE BESYLATE [Concomitant]
     Indication: BLOOD PRESSURE
     Route: 048
  3. AMILORIDE HCL AND HYDROCHLOROTHIAZIDE [Concomitant]
     Indication: BLOOD PRESSURE
     Dosage: 5/50MG DAILY
     Route: 048
  4. ATENOLOL [Concomitant]
     Indication: BLOOD PRESSURE
     Route: 048
  5. CALCIUM CHLOIDE [Concomitant]
     Indication: DRUG USE FOR UNKNOWN INDICATION
     Route: 048
  6. FOLIC ACID [Concomitant]
     Indication: DRUG USE FOR UNKNOWN INDICATION
     Route: 048
  7. LEVOTHYROXINE SODIUM [Concomitant]
     Indication: THYROID DISORDER
     Route: 048
  8. METHOTREXATE [Concomitant]
     Indication: ARTHRITIS
     Route: 058
  9. PREDNISONE TAB [Concomitant]
     Indication: ARTHRITIS
     Route: 048

REACTIONS (1)
  - DRUG DELIVERY SYSTEM MALFUNCTION [None]
